FAERS Safety Report 6691890-0 (Version None)
Quarter: 2010Q2

REPORT INFORMATION
  Report Type: 
  Country: None (occurrence: None)
  Receive Date: 20100422
  Receipt Date: 20091019
  Transmission Date: 20101027
  Serious: No
  Sender: FDA-Public Use
  Company Number: US-ASTRAZENECA-2009SE21101

PATIENT
  Age: 90 Year
  Sex: Female

DRUGS (3)
  1. TOPROL-XL [Suspect]
     Route: 048
  2. TOPROL-XL [Suspect]
     Route: 048
  3. PRESERVISION AREDS [Suspect]
     Dosage: ONE SOFT GEL DAILY

REACTIONS (2)
  - EAR DISCOMFORT [None]
  - TINNITUS [None]
